FAERS Safety Report 7310413-6 (Version None)
Quarter: 2011Q1

REPORT INFORMATION
  Report Type: 
  Country: None (occurrence: None)
  Receive Date: 20110224
  Receipt Date: 20101209
  Transmission Date: 20110831
  Serious: No
  Sender: FDA-Public Use
  Company Number: US-BRISTOL-MYERS SQUIBB COMPANY-15207608

PATIENT
  Age: 85 Year
  Sex: Female
  Weight: 55 kg

DRUGS (3)
  1. ZOLOFT [Concomitant]
  2. METFORMIN HCL [Suspect]
     Dosage: STRTED 4 MONTHS AGO
  3. TYLENOL EXTRA STRENGTH [Concomitant]

REACTIONS (4)
  - NAUSEA [None]
  - HEADACHE [None]
  - SOMNOLENCE [None]
  - DISCOMFORT [None]
